FAERS Safety Report 6744629 (Version 2)
Quarter: 2020Q3

REPORT INFORMATION
  Report Type: Spontaneous
  Country: FR (occurrence: None)
  Receive Date: 20080815
  Receipt Date: 20080902
  Transmission Date: 20201105
  Serious: Yes (Hospitalization)
  Sender: FDA-Public Use
  Company Number: FR-1166915

PATIENT
  Age: 4 Day
  Sex: Male

DRUGS (2)
  1. HOMATROPINE HYDROBROMIDE. [Suspect]
     Active Substance: HOMATROPINE HYDROBROMIDE
     Dosage: OPHTHALMIC
     Route: 047
  2. ATROPINE SULFATE. [Suspect]
     Active Substance: ATROPINE SULFATE
     Indication: OPHTHALMOLOGICAL EXAMINATION
     Dosage: 1 GTT OU TWICE   OPHTHALMIC
     Route: 047
     Dates: start: 20080730, end: 20080730

REACTIONS (3)
  - Mydriasis [None]
  - Medication error [None]
  - Wrong product administered [None]

NARRATIVE: CASE EVENT DATE: 20080730
